FAERS Safety Report 6760026-X (Version None)
Quarter: 2010Q2

REPORT INFORMATION
  Report Type: 
  Country: None (occurrence: None)
  Receive Date: 20100524
  Receipt Date: 20100421
  Transmission Date: 20101027
  Serious: No
  Sender: FDA-Public Use
  Company Number: 010546

PATIENT
  Sex: Female
  Weight: 58.9 kg

DRUGS (7)
  1. CIMZIA [Suspect]
     Indication: RHEUMATOID ARTHRITIS
     Dosage: (SUBCUTANEOUS)
     Route: 057
  2. KLOR-CON [Concomitant]
  3. LOVASTATIN [Concomitant]
  4. TRIAMTERENE [Concomitant]
  5. CARVEDILOL [Concomitant]
  6. FOLIC ACID [Concomitant]
  7. FISH OIL [Concomitant]

REACTIONS (2)
  - MYALGIA [None]
  - PAIN [None]
